FAERS Safety Report 17816725 (Version 2)
Quarter: 2020Q2

REPORT INFORMATION
  Report Type: Spontaneous
  Country: CA (occurrence: CA)
  Receive Date: 20200522
  Receipt Date: 20200630
  Transmission Date: 20200714
  Serious: Yes (Hospitalization, Other)
  Sender: FDA-Public Use
  Company Number: CA-PFIZER INC-2020131014

PATIENT
  Age: 47 Year
  Sex: Female
  Weight: 118 kg

DRUGS (3)
  1. CELECOXIB. [Suspect]
     Active Substance: CELECOXIB
     Dosage: 200 MG, 2X/DAY
  2. SULFASALAZINE. [Concomitant]
     Active Substance: SULFASALAZINE
     Dosage: 1 G, BID
  3. INFLECTRA [Suspect]
     Active Substance: INFLIXIMAB-DYYB
     Indication: ANKYLOSING SPONDYLITIS
     Dosage: 600 MG EVERY 6 WEEKS
     Route: 042
     Dates: start: 20200416

REACTIONS (2)
  - Circulatory collapse [Unknown]
  - Gastric haemorrhage [Unknown]
